FAERS Safety Report 6716719-3 (Version None)
Quarter: 2010Q2

REPORT INFORMATION
  Report Type: 
  Country: None (occurrence: None)
  Receive Date: 20100510
  Receipt Date: 20100430
  Transmission Date: 20101027
  Serious: No
  Sender: FDA-Public Use
  Company Number: US-BIOGENIDEC-2010BI014282

PATIENT
  Age: 54 Year
  Sex: Male

DRUGS (1)
  1. AVONEX [Suspect]
     Indication: MULTIPLE SCLEROSIS
     Route: 030
     Dates: start: 20090803

REACTIONS (6)
  - ANXIETY [None]
  - DEPRESSION [None]
  - HEADACHE [None]
  - MULTIPLE SCLEROSIS [None]
  - PAIN [None]
  - STRESS [None]
